FAERS Safety Report 11603807 (Version 1)
Quarter: 2015Q4

REPORT INFORMATION
  Report Type: Spontaneous
  Country: US (occurrence: US)
  Receive Date: 20151007
  Receipt Date: 20151007
  Transmission Date: 20160304
  Serious: No
  Sender: FDA-Public Use
  Company Number: US-PAR PHARMACEUTICAL, INC-2015SCPR010335

PATIENT

DRUGS (5)
  1. VALIUM [Concomitant]
     Active Substance: DIAZEPAM
     Indication: PRODUCT USED FOR UNKNOWN INDICATION
     Dosage: UNK, PRN
     Route: 048
  2. FENTANYL TRANSDERMAL SYSTEM [Suspect]
     Active Substance: FENTANYL
  3. FENTANYL TRANSDERMAL SYSTEM [Suspect]
     Active Substance: FENTANYL
     Indication: BACK PAIN
     Dosage: 1 PATCH, EVERY 48 HOURS
     Route: 062
     Dates: start: 201408, end: 201501
  4. LISINOPRIL. [Concomitant]
     Active Substance: LISINOPRIL
     Indication: HYPERTENSION
     Dosage: 1 DF, OD
     Route: 048
  5. FENTANYL TRANSDERMAL SYSTEM [Suspect]
     Active Substance: FENTANYL

REACTIONS (14)
  - Application site rash [Not Recovered/Not Resolved]
  - Product adhesion issue [Unknown]
  - Activities of daily living impaired [Unknown]
  - Application site burn [Not Recovered/Not Resolved]
  - Insomnia [Not Recovered/Not Resolved]
  - Application site bruise [Not Recovered/Not Resolved]
  - Application site scar [Not Recovered/Not Resolved]
  - Drug ineffective [Not Recovered/Not Resolved]
  - Diarrhoea [Recovering/Resolving]
  - Application site erosion [Not Recovered/Not Resolved]
  - Vomiting [Recovered/Resolved]
  - Application site reaction [Not Recovered/Not Resolved]
  - Application site urticaria [Not Recovered/Not Resolved]
  - Product quality issue [Unknown]

NARRATIVE: CASE EVENT DATE: 201412
